FAERS Safety Report 23985408 (Version 1)
Quarter: 2024Q2

REPORT INFORMATION
  Report Type: Spontaneous
  Country: US (occurrence: US)
  Receive Date: 20240618
  Receipt Date: 20240618
  Transmission Date: 20240716
  Serious: Yes (Hospitalization, Other)
  Sender: FDA-Public Use
  Company Number: US-AstraZeneca-2024A138129

PATIENT

DRUGS (14)
  1. GOSERELIN [Suspect]
     Active Substance: GOSERELIN
     Indication: Hormone-refractory prostate cancer
     Dosage: UNK
     Route: 048
     Dates: start: 20070201, end: 20220428
  2. GOSERELIN [Suspect]
     Active Substance: GOSERELIN
     Dosage: UNK
     Route: 048
     Dates: start: 20220620, end: 20230112
  3. GOSERELIN [Suspect]
     Active Substance: GOSERELIN
     Dosage: UNK
     Route: 048
  4. ZOLADEX [Suspect]
     Active Substance: GOSERELIN ACETATE
     Indication: Hormone-refractory prostate cancer
     Dosage: UNK
     Route: 065
  5. TOPROL XL [Suspect]
     Active Substance: METOPROLOL SUCCINATE
     Indication: Product used for unknown indication
     Dosage: UNK
     Route: 048
     Dates: start: 20200908
  6. GALLIUM GA-68 GOZETOTIDE [Suspect]
     Active Substance: GALLIUM GA-68 GOZETOTIDE
     Indication: Hormone-refractory prostate cancer
     Dosage: 4.45 MCI, SINGLE
     Route: 042
     Dates: start: 20220427, end: 20220427
  7. ABIRATERONE ACETATE [Suspect]
     Active Substance: ABIRATERONE ACETATE
     Indication: Hormone-refractory prostate cancer
     Dosage: 1000 MILLIGRAM, QD
     Route: 048
     Dates: start: 20220609
  8. LUTETIUM LU-177 VIPIVOTIDE TETRAXETAN [Suspect]
     Active Substance: LUTETIUM LU-177 VIPIVOTIDE TETRAXETAN
     Indication: Hormone-refractory prostate cancer
     Dosage: 190.92 MCI, ONCE/SINGLE
     Route: 042
     Dates: start: 20221118
  9. ELIQUIS [Suspect]
     Active Substance: APIXABAN
     Indication: Product used for unknown indication
     Dosage: UNK
     Route: 065
     Dates: start: 20170406
  10. DIETHYLSTILBESTROL [Concomitant]
     Active Substance: DIETHYLSTILBESTROL
     Indication: Product used for unknown indication
     Dosage: UNK
     Route: 065
     Dates: start: 20160614, end: 20220428
  11. PAXIL [Concomitant]
     Active Substance: PAROXETINE HYDROCHLORIDE
     Indication: Product used for unknown indication
     Dosage: UNK
     Route: 065
     Dates: start: 20160614
  12. PRAVACHOL [Concomitant]
     Active Substance: PRAVASTATIN SODIUM
     Indication: Product used for unknown indication
     Dosage: UNK
     Route: 065
     Dates: start: 20160614
  13. AVALIDE [Concomitant]
     Active Substance: HYDROCHLOROTHIAZIDE\IRBESARTAN
     Indication: Product used for unknown indication
     Dosage: UNK
     Route: 065
     Dates: start: 20180410
  14. DAROLUTAMIDE [Concomitant]
     Active Substance: DAROLUTAMIDE
     Indication: Product used for unknown indication
     Dosage: UNK
     Route: 065
     Dates: start: 20200701, end: 20220428

REACTIONS (2)
  - Intra-abdominal haematoma [Recovered/Resolved]
  - Pelvic haematoma [Recovered/Resolved]

NARRATIVE: CASE EVENT DATE: 20230112
